FAERS Safety Report 8819799 (Version 2)
Quarter: 2015Q1

REPORT INFORMATION
  Report Type: Report from Study
  Country: US (occurrence: US)
  Receive Date: 20121001
  Receipt Date: 20150226
  Transmission Date: 20150721
  Serious: Yes (Death)
  Sender: FDA-Public Use
  Company Number: US-ROCHE-1131596

PATIENT
  Sex: Female
  Weight: 45 kg

DRUGS (15)
  1. AVASTIN [Suspect]
     Active Substance: BEVACIZUMAB
     Indication: RENAL CANCER
     Route: 065
     Dates: start: 20071127
  2. AVASTIN [Suspect]
     Active Substance: BEVACIZUMAB
     Route: 050
     Dates: start: 20080105
  3. ANZEMET [Concomitant]
     Active Substance: DOLASETRON MESYLATE
     Dosage: 100 (UNIT NOT REPORTED)
     Route: 065
  4. AVASTIN [Suspect]
     Active Substance: BEVACIZUMAB
     Indication: MALIGNANT URINARY TRACT NEOPLASM
     Route: 050
     Dates: start: 20071211
  5. AVASTIN [Suspect]
     Active Substance: BEVACIZUMAB
     Route: 050
     Dates: start: 20071226
  6. AVASTIN [Suspect]
     Active Substance: BEVACIZUMAB
     Route: 050
     Dates: start: 20080108
  7. AVASTIN [Suspect]
     Active Substance: BEVACIZUMAB
     Route: 050
     Dates: start: 20080219
  8. SUTENT [Concomitant]
     Active Substance: SUNITINIB MALATE
  9. PREVACID [Concomitant]
     Active Substance: LANSOPRAZOLE
  10. DECADRON [Concomitant]
     Active Substance: DEXAMETHASONE
     Dosage: 10 (UNIT NOT REPORTED)
     Route: 065
  11. FOSAMAX [Concomitant]
     Active Substance: ALENDRONATE SODIUM
  12. TYLENOL [Concomitant]
     Active Substance: ACETAMINOPHEN
  13. NORVASC [Concomitant]
     Active Substance: AMLODIPINE BESYLATE
     Route: 065
  14. IMODIUM [Concomitant]
     Active Substance: LOPERAMIDE HYDROCHLORIDE
  15. LISINOPRIL. [Concomitant]
     Active Substance: LISINOPRIL
     Route: 065

REACTIONS (10)
  - Disease progression [Unknown]
  - Fatigue [Unknown]
  - Peripheral swelling [Unknown]
  - Diarrhoea [Unknown]
  - Death [Fatal]
  - Headache [Unknown]
  - Off label use [Unknown]
  - Lymphadenopathy [Unknown]
  - Hypertension [Unknown]
  - Hypoaesthesia [Unknown]
